FAERS Safety Report 4628452-2 (Version None)
Quarter: 2005Q2

REPORT INFORMATION
  Report Type: 
  Country: None (occurrence: None)
  Receive Date: 20050404
  Receipt Date: 20050221
  Transmission Date: 20051028
  Serious: Yes (Death)
  Sender: FDA-Public Use
  Company Number: 2005-DE-00698GD

PATIENT

DRUGS (3)
  1. ALBUTEROL SULFATE HFA [Suspect]
     Indication: OBSTRUCTIVE AIRWAYS DISORDER
  2. CORTICOSTEROIDS (CORTICOSTEROIDS) [Suspect]
     Indication: OBSTRUCTIVE AIRWAYS DISORDER
  3. BROAD SPECTRUM ANTIBIOTICS (ANTIBIOTICS) [Suspect]
     Indication: OBSTRUCTIVE AIRWAYS DISORDER

REACTIONS (12)
  - APNOEA [None]
  - CARDIAC FAILURE [None]
  - CHEST X-RAY ABNORMAL [None]
  - CONGENITAL PULMONARY ARTERY ANOMALY [None]
  - CYANOSIS [None]
  - OBSTRUCTIVE AIRWAYS DISORDER [None]
  - POST PROCEDURAL COMPLICATION [None]
  - PULMONARY MALFORMATION [None]
  - RESPIRATORY FAILURE [None]
  - STRIDOR [None]
  - VENTRICULAR SEPTAL DEFECT [None]
  - WHEEZING [None]
